FAERS Safety Report 21969410 (Version 1)
Quarter: 2023Q1

REPORT INFORMATION
  Report Type: Other
  Country: None (occurrence: US)
  Receive Date: 20230208
  Receipt Date: 20230208
  Transmission Date: 20230418
  Serious: Yes (Other)
  Sender: FDA-Public Use
  Company Number: US-JLO Beauty + Lifestyle, LLC.-2137686

PATIENT
  Age: 46 Year
  Sex: Female

DRUGS (1)
  1. JLO BEAUTY THAT BIG SCREEN BROAD SPECTRUM SPF 30 MOISTURIZER [Suspect]
     Active Substance: HOMOSALATE\OCTISALATE\ZINC OXIDE
     Route: 061
     Dates: start: 20221018, end: 20230113

REACTIONS (1)
  - Basal cell carcinoma [Recovered/Resolved]

NARRATIVE: CASE EVENT DATE: 20221118
